FAERS Safety Report 7270782-2 (Version None)
Quarter: 2011Q1

REPORT INFORMATION
  Report Type: 
  Country: None (occurrence: None)
  Receive Date: 20110202
  Receipt Date: 20110128
  Transmission Date: 20110831
  Serious: Yes (Hospitalization, Disabling, Other)
  Sender: FDA-Public Use
  Company Number: US-PFIZER INC-2010157200

PATIENT
  Sex: Female

DRUGS (8)
  1. CHANTIX [Suspect]
     Indication: SMOKING CESSATION THERAPY
     Dosage: 1 MG, UNK
     Dates: start: 20080725, end: 20090601
  2. PRILOSEC [Concomitant]
     Indication: DYSPEPSIA
     Dosage: UNK
     Dates: start: 20070101
  3. TRAMADOL [Concomitant]
     Indication: PAIN
     Dosage: UNK
     Dates: start: 20070101
  4. PROAIR HFA [Concomitant]
     Indication: ASTHMA
     Dosage: UNK
     Dates: start: 20000101
  5. ABILIFY [Concomitant]
     Indication: BIPOLAR DISORDER
  6. BUSPIRONE [Concomitant]
     Indication: ANXIETY DISORDER
     Dosage: UNK
     Dates: start: 20010101
  7. WELLBUTRIN [Concomitant]
     Indication: DEPRESSION
     Dosage: UNK
     Dates: start: 20010101
  8. ABILIFY [Concomitant]
     Indication: DEPRESSION
     Dosage: UNK
     Dates: start: 20010101

REACTIONS (9)
  - SUICIDE ATTEMPT [None]
  - IMPAIRED DRIVING ABILITY [None]
  - DEPRESSION [None]
  - INTENTIONAL OVERDOSE [None]
  - EMOTIONAL DISTRESS [None]
  - ANXIETY [None]
  - AGGRESSION [None]
  - ABNORMAL BEHAVIOUR [None]
  - MENTAL DISORDER [None]
